FAERS Safety Report 10362084 (Version 4)
Quarter: 2014Q4

REPORT INFORMATION
  Report Type: Spontaneous
  Country: US (occurrence: US)
  Receive Date: 20140805
  Receipt Date: 20141104
  Transmission Date: 20150528
  Serious: Yes (Hospitalization)
  Sender: FDA-Public Use
  Company Number: US-BAYER-2014-114246

PATIENT
  Age: 26 Year
  Sex: Female
  Weight: 58.96 kg

DRUGS (1)
  1. MIRENA [Suspect]
     Active Substance: LEVONORGESTREL
     Indication: CONTRACEPTION
     Dosage: 20 MCG/24HR, CONT
     Route: 015
     Dates: start: 20080915, end: 20130925

REACTIONS (9)
  - Drug ineffective [None]
  - Injury [None]
  - Device dislocation [None]
  - Pregnancy with contraceptive device [None]
  - Abdominal pain lower [None]
  - Pain [None]
  - Migraine [None]
  - Uterine perforation [None]
  - Device difficult to use [None]

NARRATIVE: CASE EVENT DATE: 2012
